FAERS Safety Report 9026204 (Version 1)
Quarter: 2013Q1

REPORT INFORMATION
  Report Type: Spontaneous
  Country: BR (occurrence: BR)
  Receive Date: 20130123
  Receipt Date: 20130123
  Transmission Date: 20140127
  Serious: Yes (Death)
  Sender: FDA-Public Use
  Company Number: PHHY2013BR006004

PATIENT
  Age: 73 Year
  Sex: Female

DRUGS (2)
  1. DIOVAN [Suspect]
  2. DIOVAN AMLO FIX [Suspect]
     Dosage: 320 MG VALS AND 10 AMLO

REACTIONS (1)
  - Death [Fatal]
